FAERS Safety Report 26208172 (Version 1)
Quarter: 2025Q4

REPORT INFORMATION
  Report Type: Spontaneous
  Country: US (occurrence: US)
  Receive Date: 20251229
  Receipt Date: 20251229
  Transmission Date: 20260118
  Serious: Yes (Hospitalization)
  Sender: MYLAN
  Company Number: US-MYLANLABS-2025M1109855

PATIENT
  Age: 66 Year
  Sex: Female

DRUGS (1)
  1. MIDODRINE [Suspect]
     Active Substance: MIDODRINE
     Indication: Vasopressive therapy
     Dosage: UNK

REACTIONS (4)
  - Hypertension [Unknown]
  - Condition aggravated [Unknown]
  - Pulmonary oedema [Unknown]
  - Hypervolaemia [Unknown]
